FAERS Safety Report 6265529-2 (Version None)
Quarter: 2009Q3

REPORT INFORMATION
  Report Type: 
  Country: None (occurrence: None)
  Receive Date: 20090709
  Receipt Date: 20090709
  Transmission Date: 20100115
  Serious: No
  Sender: FDA-Public Use
  Company Number: None

PATIENT
  Age: 57 Year
  Sex: Male
  Weight: 81.6475 kg

DRUGS (1)
  1. MYSOLINE [Suspect]
     Indication: EPILEPSY
     Dosage: HALF TWICE PER DAY PO
     Route: 048
     Dates: start: 19850710, end: 20050621

REACTIONS (1)
  - HYPOAESTHESIA [None]
